FAERS Safety Report 7074468-9 (Version None)
Quarter: 2010Q4

REPORT INFORMATION
  Report Type: 
  Country: None (occurrence: None)
  Receive Date: 20101029
  Receipt Date: 20101021
  Transmission Date: 20110411
  Serious: Yes (Death, Life-Threatening)
  Sender: FDA-Public Use
  Company Number: GB-GENZYME-CLOF-1001281

PATIENT
  Sex: Female

DRUGS (1)
  1. EVOLTRA [Suspect]
     Indication: PRODUCT USED FOR UNKNOWN INDICATION
     Dosage: UNK
     Route: 042
     Dates: start: 20101014, end: 20101016

REACTIONS (1)
  - TUMOUR LYSIS SYNDROME [None]
